FAERS Safety Report 5976045-7 (Version None)
Quarter: 2008Q4

REPORT INFORMATION
  Report Type: 
  Country: None (occurrence: None)
  Receive Date: 20081202
  Receipt Date: 20081120
  Transmission Date: 20090506
  Serious: Yes (Other)
  Sender: FDA-Public Use
  Company Number: US-KINGPHARMUSA00001-K200801340

PATIENT
  Age: 54 Year
  Sex: Female

DRUGS (2)
  1. CYTOMEL [Suspect]
     Indication: HYPOTHYROIDISM
     Dosage: UNKNOWN ^10MG^, QD
     Route: 048
     Dates: start: 20081110, end: 20081116
  2. SYNTHROID [Concomitant]
     Indication: HYPOTHYROIDISM
     Dosage: UNK
     Dates: start: 20010101

REACTIONS (2)
  - PHARYNGEAL OEDEMA [None]
  - THROAT IRRITATION [None]
